FAERS Safety Report 9280875 (Version 1)
Quarter: 2013Q2

REPORT INFORMATION
  Report Type: Spontaneous
  Country: DE (occurrence: DE)
  Receive Date: 20130509
  Receipt Date: 20130509
  Transmission Date: 20140414
  Serious: Yes (Death, Other)
  Sender: FDA-Public Use
  Company Number: DE-NAPPMUNDI-DEU-2013-0011495

PATIENT
  Sex: Female

DRUGS (3)
  1. MSI MUNDIPHARMA [Suspect]
     Indication: PRODUCT USED FOR UNKNOWN INDICATION
     Dosage: UNK
     Route: 042
     Dates: start: 201006
  2. PIRITRAMIDE [Concomitant]
     Dosage: UNK
     Dates: end: 20100619
  3. NOVALGIN                           /06276704/ [Concomitant]
     Dosage: UNK
     Dates: end: 20100619

REACTIONS (5)
  - Septic shock [Fatal]
  - Death [Fatal]
  - Indifference [Unknown]
  - Nightmare [Unknown]
  - Asphyxia [Unknown]
